FAERS Safety Report 13340699 (Version 1)
Quarter: 2017Q1

REPORT INFORMATION
  Report Type: Spontaneous
  Country: US (occurrence: US)
  Receive Date: 20170315
  Receipt Date: 20170315
  Transmission Date: 20170428
  Serious: No
  Sender: FDA-Public Use
  Company Number: None

PATIENT
  Age: 71 Year
  Sex: Female
  Weight: 62.1 kg

DRUGS (13)
  1. BIO-FIBER [Concomitant]
  2. FLUOROURACIL CREAM, USP 5% [Suspect]
     Active Substance: FLUOROURACIL
     Indication: PHOTODERMATOSIS
     Dosage: QUANTITY:1 PEA SIZE;?
     Route: 061
     Dates: start: 20161114, end: 20161128
  3. VITAMIN D [Concomitant]
     Active Substance: CHOLECALCIFEROL
  4. IBUPROFEN. [Concomitant]
     Active Substance: IBUPROFEN
  5. SUPER EPA FISH OIL [Concomitant]
  6. VITAMIN C [Concomitant]
     Active Substance: ASCORBIC ACID
  7. UBIQUINOL Q10 [Concomitant]
  8. CALCIUM/MAGNESIUM [Concomitant]
  9. NIACIN ER [Concomitant]
     Active Substance: NIACIN
  10. MULTI W/O IRON [Concomitant]
  11. ADVIL PM [Concomitant]
     Active Substance: DIPHENHYDRAMINE CITRATE\IBUPROFEN
  12. ZOFLEXA [Concomitant]
  13. CRESTOR [Concomitant]
     Active Substance: ROSUVASTATIN CALCIUM

REACTIONS (3)
  - Scab [None]
  - Blister [None]
  - Dysgeusia [None]

NARRATIVE: CASE EVENT DATE: 20161202
